FAERS Safety Report 9491495 (Version 1)
Quarter: 2013Q3

REPORT INFORMATION
  Report Type: Spontaneous
  Country: IT (occurrence: None)
  Receive Date: 20130827
  Receipt Date: 20130827
  Transmission Date: 20140515
  Serious: Yes (Death)
  Sender: FDA-Public Use
  Company Number: 083-21880-13081911

PATIENT
  Sex: Male

DRUGS (16)
  1. REVLIMID [Suspect]
     Indication: PLASMA CELL MYELOMA
     Route: 048
     Dates: start: 20120418
  2. DEXAMETHASONE [Suspect]
     Route: 042
     Dates: start: 20120502
  3. LANSOPRAZOLE (LANSOPRAZOLE) (UNKNOWN [Concomitant]
  4. CARDIOASPIRIN (ACETYLSALICYLIC ACID) ( UNKNOWN) [Concomitant]
  5. CO-TRIMOXAZOLE (BACTRIM) (UNKNOWN) [Concomitant]
  6. ZOLEDRONIC ACID (ZOLEDRONIC ACID) (UNKNOWN) [Concomitant]
  7. ACETYLSALICYLIC ACID(ACETYLSALICYLIC ACID) (UNKNOWN) [Concomitant]
  8. FENTANYL (FENTANYL) (UNKNOWN) (FENTANYL) [Concomitant]
  9. MORPHINE CHLORIDRATE (UNKNOWN) [Concomitant]
  10. HYDROMORPHONE (HYDROMORPHONE) (UNKNOWN) (HYDROMORPHONE) [Concomitant]
  11. PREGABALIN (PREGABALIN) (UNKNOWN) [Concomitant]
  12. MORPHINE SULFATE (MORPHINE SULFATE) (UNKNOWN) [Concomitant]
  13. PARACETAMOL (PARACETAMOL) (UNKNOWN) [Concomitant]
  14. DELTEPARIN (UNKNOWN) [Concomitant]
  15. ALLOPURINOL (ALLOPURINOL) (UNKNOWN) [Concomitant]
  16. ACYCLOVIR (ACICLOVIR) (UNKNOWN) [Concomitant]

REACTIONS (1)
  - Neoplasm progression [None]
